FAERS Safety Report 7810676-4 (Version None)
Quarter: 2011Q4

REPORT INFORMATION
  Report Type: 
  Country: None (occurrence: None)
  Receive Date: 20111013
  Receipt Date: 20090112
  Transmission Date: 20120403
  Serious: No
  Sender: FDA-Public Use
  Company Number: 2009BI001205

PATIENT
  Age: 51 Year
  Sex: Male

DRUGS (1)
  1. TYSABRI [Suspect]
     Indication: MULTIPLE SCLEROSIS
     Route: 042
     Dates: start: 20081001

REACTIONS (7)
  - CHILLS [None]
  - GAIT DISTURBANCE [None]
  - BALANCE DISORDER [None]
  - VIBRATORY SENSE INCREASED [None]
  - MUSCLE SPASMS [None]
  - BURNING SENSATION [None]
  - DIZZINESS [None]
